FAERS Safety Report 6413812-X (Version None)
Quarter: 2009Q4

REPORT INFORMATION
  Report Type: 
  Country: None (occurrence: None)
  Receive Date: 20091026
  Receipt Date: 20091016
  Transmission Date: 20100525
  Serious: Yes (Other)
  Sender: FDA-Public Use
  Company Number: B0599512A

PATIENT
  Sex: Female
  Weight: 72 kg

DRUGS (1)
  1. ALLI [Suspect]
     Route: 065
     Dates: start: 20090820

REACTIONS (4)
  - FATIGUE [None]
  - LIVER FUNCTION TEST ABNORMAL [None]
  - OFF LABEL USE [None]
  - SKIN DISCOLOURATION [None]
